FAERS Safety Report 19960088 (Version 1)
Quarter: 2021Q4

REPORT INFORMATION
  Report Type: Spontaneous
  Country: US (occurrence: US)
  Receive Date: 20211015
  Receipt Date: 20211015
  Transmission Date: 20220303
  Serious: Yes (Other)
  Sender: FDA-Public Use
  Company Number: US-NELSON BACH USA LTD-2120612

PATIENT
  Age: 62 Year
  Sex: Female
  Weight: 56.82 kg

DRUGS (1)
  1. RESCUE REMEDY [Suspect]
     Active Substance: HOMEOPATHICS
     Indication: Stress
     Route: 048

REACTIONS (4)
  - Hypoaesthesia [Recovered/Resolved]
  - Nausea [Recovered/Resolved]
  - Headache [Recovered/Resolved]
  - Fatigue [Recovered/Resolved]
